FAERS Safety Report 10729898 (Version 1)
Quarter: 2015Q1

REPORT INFORMATION
  Report Type: Spontaneous
  Country: US (occurrence: None)
  Receive Date: 20150121
  Receipt Date: 20150121
  Transmission Date: 20150721
  Serious: Yes (Life-Threatening)
  Sender: FDA-Public Use
  Company Number: None

PATIENT
  Age: 49 Year
  Sex: Female
  Weight: 47.63 kg

DRUGS (1)
  1. ADVAIR HFA [Suspect]
     Active Substance: FLUTICASONE PROPIONATE\SALMETEROL XINAFOATE
     Indication: BRONCHIAL HYPERREACTIVITY
     Dosage: 2X DAILY, ONCE DAILY
     Route: 055
     Dates: start: 20141227, end: 20150110

REACTIONS (11)
  - Chest discomfort [None]
  - Sensory disturbance [None]
  - Fatigue [None]
  - Arrhythmia [None]
  - Abnormal sensation in eye [None]
  - Headache [None]
  - Eye disorder [None]
  - Hypopnoea [None]
  - Oropharyngeal pain [None]
  - Asthenia [None]
  - Throat tightness [None]

NARRATIVE: CASE EVENT DATE: 20141227
